FAERS Safety Report 23601065 (Version 6)
Quarter: 2025Q1

REPORT INFORMATION
  Report Type: Report from Study
  Country: GB (occurrence: GB)
  Receive Date: 20240306
  Receipt Date: 20250108
  Transmission Date: 20250408
  Serious: Yes (Hospitalization)
  Sender: SANDOZ
  Company Number: GB-SANDOZ-SDZ2024GB023581

PATIENT
  Sex: Male

DRUGS (1)
  1. OMNITROPE [Suspect]
     Active Substance: SOMATROPIN
     Indication: Hyperpituitarism
     Dosage: 1 MG
     Route: 058
     Dates: start: 20231204

REACTIONS (4)
  - Cardiac disorder [Unknown]
  - Malaise [Unknown]
  - Drug dose omission by device [Unknown]
  - Device use issue [Unknown]
